FAERS Safety Report 24302148 (Version 1)
Quarter: 2024Q3

REPORT INFORMATION
  Report Type: Spontaneous
  Country: KR (occurrence: KR)
  Receive Date: 20240910
  Receipt Date: 20240910
  Transmission Date: 20241016
  Serious: Yes (Hospitalization)
  Sender: MYLAN
  Company Number: KR-MYLANLABS-2024M1010964

PATIENT
  Age: 39 Year
  Sex: Female

DRUGS (13)
  1. CLOZARIL [Suspect]
     Active Substance: CLOZAPINE
     Indication: Paranoia
     Dosage: UNK
     Route: 065
  2. CLOZARIL [Suspect]
     Active Substance: CLOZAPINE
     Dosage: 75 MILLIGRAM, UNK
     Route: 048
     Dates: start: 20240208
  3. CLOZARIL [Suspect]
     Active Substance: CLOZAPINE
     Dosage: 50 MILLIGRAM, UNK
     Route: 048
     Dates: start: 20240212
  4. CLOZARIL [Suspect]
     Active Substance: CLOZAPINE
     Dosage: 37.5 MILLIGRAM, UNK
     Route: 048
     Dates: start: 20240219
  5. CLOZARIL [Suspect]
     Active Substance: CLOZAPINE
     Dosage: 25 MILLIGRAM, UNK
     Route: 048
     Dates: start: 20240227
  6. CLOZARIL [Suspect]
     Active Substance: CLOZAPINE
     Dosage: 37.5 MILLIGRAM, UNK
     Route: 048
     Dates: start: 20240312
  7. CLOZARIL [Suspect]
     Active Substance: CLOZAPINE
     Dosage: 100 MILLIGRAM, UNK
     Route: 048
     Dates: start: 20240321
  8. CLOZARIL [Suspect]
     Active Substance: CLOZAPINE
     Dosage: 175 MILLIGRAM, UNK
     Route: 048
     Dates: start: 20240325
  9. CLOZARIL [Suspect]
     Active Substance: CLOZAPINE
     Dosage: 100 MILLIGRAM, UNK
     Route: 048
     Dates: start: 20240327
  10. CLOZARIL [Suspect]
     Active Substance: CLOZAPINE
     Dosage: 155 MILLIGRAM, UNK
     Route: 048
     Dates: start: 20240329
  11. CLOZARIL [Suspect]
     Active Substance: CLOZAPINE
     Dosage: 125 MILLIGRAM, UNK
     Route: 048
     Dates: start: 20240401
  12. CLOZARIL [Suspect]
     Active Substance: CLOZAPINE
     Dosage: 100 MILLIGRAM
     Route: 048
     Dates: start: 20240409
  13. CLOZARIL [Suspect]
     Active Substance: CLOZAPINE
     Dosage: 75 MILLIGRAM
     Route: 048
     Dates: start: 20240827

REACTIONS (4)
  - Paranoia [Unknown]
  - White blood cell count decreased [Unknown]
  - Neutrophil count decreased [Unknown]
  - Off label use [Unknown]

NARRATIVE: CASE EVENT DATE: 20240126
